FAERS Safety Report 7041799-8 (Version None)
Quarter: 2010Q4

REPORT INFORMATION
  Report Type: 
  Country: None (occurrence: None)
  Receive Date: 20101013
  Receipt Date: 20101005
  Transmission Date: 20110411
  Serious: Yes (Hospitalization)
  Sender: FDA-Public Use
  Company Number: DE-ROCHE-732231

PATIENT
  Age: 55 Year
  Sex: Male

DRUGS (3)
  1. AVASTIN [Suspect]
     Route: 065
     Dates: start: 20090101
  2. IRINOTECAN HCL [Suspect]
     Route: 065
     Dates: start: 20090101
  3. FLUOROURACIL [Suspect]
     Route: 065
     Dates: start: 20090101

REACTIONS (1)
  - MESENTERITIS [None]
